FAERS Safety Report 4472768-X (Version None)
Quarter: 2004Q4

REPORT INFORMATION
  Report Type: 
  Country: None (occurrence: None)
  Receive Date: 20041008
  Receipt Date: 20040916
  Transmission Date: 20050328
  Serious: Yes (Hospitalization)
  Sender: FDA-Public Use
  Company Number: EWC040940696

PATIENT
  Age: 7 Year
  Sex: Male
  Weight: 21 kg

DRUGS (1)
  1. ATOMOXETINE HYDROCHLORIDE [Suspect]
     Indication: ATTENTION DEFICIT/HYPERACTIVITY DISORDER
     Dosage: 25 MG/1 DAY
     Dates: start: 20040423

REACTIONS (1)
  - APPENDICITIS [None]
